FAERS Safety Report 16214971 (Version 2)
Quarter: 2019Q2

REPORT INFORMATION
  Report Type: Spontaneous
  Country: US (occurrence: US)
  Receive Date: 20190418
  Receipt Date: 20190424
  Transmission Date: 20190711
  Serious: No
  Sender: FDA-Public Use
  Company Number: US-JNJFOC-20190401122

PATIENT
  Sex: Female
  Weight: 90.72 kg

DRUGS (2)
  1. IMODIUM A-D [Suspect]
     Active Substance: LOPERAMIDE HYDROCHLORIDE
     Route: 048
  2. IMODIUM A-D [Suspect]
     Active Substance: LOPERAMIDE HYDROCHLORIDE
     Indication: DIARRHOEA
     Dosage: HALF OF THE MEASURING CUP ONCE
     Route: 048

REACTIONS (3)
  - Product complaint [Unknown]
  - Dysphagia [Recovered/Resolved]
  - Product physical issue [Unknown]
